FAERS Safety Report 5391807-5 (Version None)
Quarter: 2007Q3

REPORT INFORMATION
  Report Type: 
  Country: None (occurrence: None)
  Receive Date: 20070717
  Receipt Date: 20070622
  Transmission Date: 20080115
  Serious: Yes (Other)
  Sender: FDA-Public Use
  Company Number: 02100-JPN-07-0302

PATIENT
  Age: 71 Year
  Sex: Female

DRUGS (6)
  1. CILOSTAZOL [Suspect]
     Indication: ARTERIOSCLEROSIS
     Dosage: 50 MG ORAL
     Route: 048
     Dates: start: 20070612, end: 20070619
  2. SHAKUYAKU-KANZO-TO [Suspect]
     Indication: MUSCLE SPASMS
     Dosage: 2.5 G ORAL
     Route: 048
     Dates: start: 20070228, end: 20070626
  3. KETPROFEN [Concomitant]
  4. VALSARTAN [Concomitant]
  5. AMLODIPINE BESYLATE [Concomitant]
  6. KETOPROFEN [Concomitant]

REACTIONS (2)
  - HYPOKALAEMIA [None]
  - RHABDOMYOLYSIS [None]
